FAERS Safety Report 5331461-1 (Version None)
Quarter: 2007Q2

REPORT INFORMATION
  Report Type: 
  Country: None (occurrence: None)
  Receive Date: 20070522
  Receipt Date: 20070514
  Transmission Date: 20071010
  Serious: Yes (Hospitalization)
  Sender: FDA-Public Use
  Company Number: FR-BRISTOL-MYERS SQUIBB COMPANY-13787890

PATIENT
  Age: 72 Year
  Sex: Female

DRUGS (1)
  1. ENDOXAN [Suspect]
     Indication: INTERSTITIAL LUNG DISEASE
     Route: 048
     Dates: start: 20070227, end: 20070404

REACTIONS (1)
  - HEPATITIS CHOLESTATIC [None]
